FAERS Safety Report 7576015-1 (Version None)
Quarter: 2011Q2

REPORT INFORMATION
  Report Type: 
  Country: None (occurrence: None)
  Receive Date: 20110628
  Receipt Date: 20091220
  Transmission Date: 20111010
  Serious: Yes (Death, Hospitalization, Other)
  Sender: FDA-Public Use
  Company Number: US-BAYER-2011-010571

PATIENT
  Age: 19 Year
  Sex: Male
  Weight: 70.748 kg

DRUGS (38)
  1. TOPROL-XL [Concomitant]
     Dosage: 75 MG, QD
     Route: 048
     Dates: start: 20050101
  2. LASIX [Concomitant]
     Dosage: 40 MG, BID
     Route: 048
  3. POTASSIUM CHLORIDE [Concomitant]
     Dosage: 40 MEQ, BID
     Route: 048
  4. POTASSIUM CHLORIDE [Concomitant]
     Dosage: 20 MEQ, QD
     Route: 048
     Dates: start: 20050101
  5. FENTANYL [Concomitant]
     Dosage: 2000 MCG
     Route: 042
     Dates: start: 20061218
  6. METHYLPREDNISOLONE [Concomitant]
     Dosage: 500 MG, UNK
     Route: 042
     Dates: start: 20061218
  7. ISUPREL [Concomitant]
     Dosage: UNK
     Route: 048
     Dates: start: 20060101
  8. UNASYN [Concomitant]
     Dosage: UNK
     Route: 042
     Dates: start: 20060101
  9. TRASYLOL [Suspect]
     Indication: CARDIOPULMONARY BYPASS
     Dosage: UNK
     Route: 042
     Dates: start: 20061218
  10. PROGRAF [Concomitant]
     Dosage: UNK
     Dates: start: 20060101
  11. PROPOFOL [Concomitant]
     Dosage: 10 MG/ML, UNK
     Route: 042
     Dates: start: 20061218, end: 20061218
  12. MAGNESIUM SULFATE [Concomitant]
     Dosage: 2 GM/50 ML, UNK
     Route: 042
     Dates: start: 20061218
  13. CEFUROXIME [Concomitant]
     Dosage: 1.5 G, UNK
     Route: 042
     Dates: start: 20061218
  14. HEPARIN [Concomitant]
     Dosage: 21000 U, UNK
     Route: 042
     Dates: start: 20061218
  15. HEPARIN [Concomitant]
     Dosage: 10, 000 UNITS, UNK
     Route: 042
     Dates: start: 20061218
  16. AMIODARONE HCL [Concomitant]
     Dosage: 250 MG, UNK
     Route: 042
     Dates: start: 20061218
  17. PREDNISONE [Concomitant]
     Dosage: 40 MG, QD
     Route: 048
     Dates: start: 20050101
  18. MIDAZOLAM HCL [Concomitant]
     Dosage: 1MG/1ML, UNK
     Route: 042
     Dates: start: 20061218
  19. PLATELETS [Concomitant]
     Dosage: 768 UNITS UNSPECIFIED
     Route: 042
     Dates: start: 20061218
  20. VASOPRESSIN [Concomitant]
     Dosage: UNK
     Route: 048
     Dates: start: 20060101
  21. PROTONIX [Concomitant]
     Dosage: UNK
     Dates: start: 20060101
  22. SOLU-MEDROL [Concomitant]
     Dosage: UNK
     Dates: start: 20060101
  23. ATACAND HCT [Concomitant]
     Dosage: 4 MG, QD
     Route: 048
  24. MILRINONE [Concomitant]
     Dosage: 2 MG, UNK
     Route: 042
     Dates: start: 20061218
  25. TRASYLOL [Suspect]
     Dosage: 10,000 UNITS, UNK
     Route: 042
     Dates: start: 20061018
  26. NOREPINEPHRINE BITARTRATE [Concomitant]
     Dosage: 4 MG, UNK
     Route: 042
     Dates: start: 20061218, end: 20061218
  27. AMINOCAPROIC ACID [Concomitant]
     Dosage: 10 G, UNK
     Route: 042
     Dates: start: 20061218
  28. CALCIUM CHLORIDE [Concomitant]
     Dosage: 500 MG, UNK
     Route: 042
     Dates: start: 20061218
  29. ISOPROTERENOL HCL [Concomitant]
     Dosage: 1 MG, UNK
     Route: 042
     Dates: start: 20061218, end: 20061218
  30. CELLCEPT [Concomitant]
     Dosage: UNK
     Dates: start: 20060101
  31. INSULIN [Concomitant]
     Dosage: UNK
     Route: 042
     Dates: start: 20060101
  32. PANCURONIUM [Concomitant]
     Dosage: 10 MG, UNK
     Route: 042
     Dates: start: 20061218
  33. PANCURONIUM [Concomitant]
     Dosage: 1MG/ML X 5 VIALS, UNK
     Route: 042
     Dates: start: 20061218
  34. SUCCINYLCHOLINE CHLORIDE [Concomitant]
     Dosage: 100 MG, UNK
     Route: 042
     Dates: start: 20061218
  35. PHENYLEPHRINE HCL [Concomitant]
     Dosage: 800 MCG
     Route: 042
     Dates: start: 20061218
  36. PROTAMINE SULFATE [Concomitant]
     Dosage: 250 MG, UNK
     Route: 042
     Dates: start: 20061218
  37. VASOPRESSIN [Concomitant]
     Dosage: 20 UNITS, UNK
     Route: 042
     Dates: start: 20061218
  38. POTASSIUM [Concomitant]
     Dosage: UNK
     Dates: start: 20060101

REACTIONS (9)
  - PAIN [None]
  - ANXIETY [None]
  - UNEVALUABLE EVENT [None]
  - DEPRESSION [None]
  - ANHEDONIA [None]
  - DEATH [None]
  - FEAR [None]
  - RENAL FAILURE [None]
  - INJURY [None]
